FAERS Safety Report 6961485-X (Version None)
Quarter: 2010Q3

REPORT INFORMATION
  Report Type: 
  Country: None (occurrence: None)
  Receive Date: 20100901
  Receipt Date: 20100826
  Transmission Date: 20110219
  Serious: Yes (Death, Hospitalization)
  Sender: FDA-Public Use
  Company Number: PHHY2010EC56796

PATIENT
  Age: 93 Year
  Sex: Female

DRUGS (3)
  1. RASILEZ [Suspect]
     Indication: HYPERTENSION
     Dosage: 300 MG DAILY
     Route: 048
     Dates: start: 20100101
  2. MEMANTINE [Concomitant]
     Dosage: 10MG, UNK
  3. GINKGO BILOBA [Concomitant]
     Dosage: 80 MG/ML

REACTIONS (2)
  - PNEUMONIA [None]
  - RESPIRATORY ARREST [None]
